FAERS Safety Report 4308402-9 (Version None)
Quarter: 2004Q1

REPORT INFORMATION
  Report Type: 
  Country: None (occurrence: None)
  Receive Date: 20040301
  Receipt Date: 20040220
  Transmission Date: 20041129
  Serious: Yes (Hospitalization)
  Sender: FDA-Public Use
  Company Number: WAES 0402SWE00013

PATIENT
  Age: 73 Year
  Sex: Male

DRUGS (6)
  1. ACETAMINOPHEN AND PROPOXYPHENE HYDROCHLORIDE [Concomitant]
  2. ATENOLOL [Concomitant]
  3. DECADRON [Suspect]
     Indication: AMYLOIDOSIS
     Route: 048
     Dates: start: 20030422
  4. GABAPENTIN [Concomitant]
  5. PRAVASTATIN SODIUM [Concomitant]
  6. WARFARIN SODIUM [Suspect]
     Indication: CARDIAC ASSISTANCE DEVICE USER
     Route: 048

REACTIONS (2)
  - INTERNATIONAL NORMALISED RATIO INCREASED [None]
  - PROTHROMBIN LEVEL DECREASED [None]
